FAERS Safety Report 7827710-8 (Version None)
Quarter: 2011Q4

REPORT INFORMATION
  Report Type: 
  Country: None (occurrence: None)
  Receive Date: 20111018
  Receipt Date: 20111003
  Transmission Date: 20120403
  Serious: Yes (Death)
  Sender: FDA-Public Use
  Company Number: UTC-010825

PATIENT
  Age: 54 Year
  Sex: Female
  Weight: 76.36 kg

DRUGS (1)
  1. REMODULIN [Suspect]
     Indication: COR PULMONALE CHRONIC
     Dosage: 0.127 UG/KG, INTRAVENOUS
     Route: 042
     Dates: start: 20090714

REACTIONS (1)
  - DEATH [None]
